FAERS Safety Report 11829823 (Version 1)
Quarter: 2015Q4

REPORT INFORMATION
  Report Type: Spontaneous
  Country: US (occurrence: US)
  Receive Date: 20151212
  Receipt Date: 20151212
  Transmission Date: 20160305
  Serious: No
  Sender: FDA-Public Use
  Company Number: US-BAUSCH-BL-2015-022680

PATIENT
  Age: 84 Year
  Sex: Male

DRUGS (3)
  1. PLAVIX [Concomitant]
     Active Substance: CLOPIDOGREL BISULFATE
     Indication: TRANSIENT ISCHAEMIC ATTACK
     Route: 061
  2. PROTONIX [Concomitant]
     Active Substance: PANTOPRAZOLE SODIUM
     Indication: GASTROOESOPHAGEAL REFLUX DISEASE
     Route: 048
  3. CARAC [Suspect]
     Active Substance: FLUOROURACIL
     Indication: PHOTOSENSITIVITY REACTION
     Dosage: USED ON HIS NOSE AND TOP OF EARS
     Route: 061
     Dates: start: 201508, end: 20150926

REACTIONS (1)
  - Nail disorder [Unknown]

NARRATIVE: CASE EVENT DATE: 20150928
